FAERS Safety Report 10521369 (Version 1)
Quarter: 2014Q4

REPORT INFORMATION
  Report Type: Spontaneous
  Country: US (occurrence: US)
  Receive Date: 20141016
  Receipt Date: 20141016
  Transmission Date: 20150528
  Serious: Yes (Other)
  Sender: FDA-Public Use
  Company Number: PHHY2014US133470

PATIENT
  Age: 65 Year
  Sex: Male

DRUGS (5)
  1. IRINOTECAN [Suspect]
     Active Substance: IRINOTECAN
     Indication: PANCREATIC CARCINOMA METASTATIC
     Dosage: 180 MG/M2, OVER 120 MIN ON DAY 1
     Route: 041
  2. LEUCOVORIN [Concomitant]
     Active Substance: LEUCOVORIN
     Indication: PANCREATIC CARCINOMA METASTATIC
     Dosage: 400 MG/M2, ON DAY 1
     Route: 040
  3. 5 FLUORO URACIL [Concomitant]
     Active Substance: FLUOROURACIL
     Indication: PANCREATIC CARCINOMA METASTATIC
     Dosage: 400 MG/M2, ON DAY 1
     Route: 040
  4. OXALIPLATIN. [Suspect]
     Active Substance: OXALIPLATIN
     Indication: PANCREATIC CARCINOMA METASTATIC
     Dosage: 85 MG/M2, OVER 120 MIN ON DAY 1
     Route: 041
  5. 5 FLUORO URACIL [Concomitant]
     Active Substance: FLUOROURACIL
     Dosage: 2400 MG/M2, OVER 46 H
     Route: 042

REACTIONS (6)
  - Dysarthria [Recovered/Resolved]
  - Neurotoxicity [Unknown]
  - Paraesthesia [Unknown]
  - Muscle contractions involuntary [Unknown]
  - Peripheral sensory neuropathy [Unknown]
  - Lhermitte^s sign [Unknown]
